FAERS Safety Report 13370649 (Version 2)
Quarter: 2017Q1

REPORT INFORMATION
  Report Type: Spontaneous
  Country: US (occurrence: US)
  Receive Date: 20170324
  Receipt Date: 20170330
  Transmission Date: 20170429
  Serious: Yes (Hospitalization, Other)
  Sender: FDA-Public Use
  Company Number: PHEH2017US007787

PATIENT
  Age: 73 Year
  Sex: Male

DRUGS (59)
  1. NEORAL [Suspect]
     Active Substance: CYCLOSPORINE
     Indication: LUNG TRANSPLANT
     Dosage: 25 MG, BID
     Route: 065
  2. ALENDRONATE SODIUM. [Concomitant]
     Active Substance: ALENDRONATE SODIUM
     Dosage: 10 MG, UNK
     Route: 048
     Dates: start: 20160511
  3. ITRACONAZOLE. [Concomitant]
     Active Substance: ITRACONAZOLE
     Indication: PRODUCT USED FOR UNKNOWN INDICATION
     Dosage: 100 MG, BID
     Route: 048
     Dates: start: 20160511
  4. VALGANCICLOVIR HYDROCHLORIDE. [Concomitant]
     Active Substance: VALGANCICLOVIR HYDROCHLORIDE
     Dosage: 64.28 MG, (450 MG MON, WED AND FRIDAY)
     Route: 048
  5. ADVAIR HFA [Concomitant]
     Active Substance: FLUTICASONE PROPIONATE\SALMETEROL XINAFOATE
     Indication: PRODUCT USED FOR UNKNOWN INDICATION
     Dosage: 1 PUFF EVERY 12 HR
     Route: 045
     Dates: start: 20160511
  6. NYSTATIN. [Concomitant]
     Active Substance: NYSTATIN
     Dosage: 5 ML, QID
     Route: 048
  7. PRAVASTATIN. [Concomitant]
     Active Substance: PRAVASTATIN
     Indication: PRODUCT USED FOR UNKNOWN INDICATION
     Dosage: 40 MG, QHS
     Route: 048
     Dates: start: 20160511
  8. PREDNISONE. [Concomitant]
     Active Substance: PREDNISONE
     Indication: PRODUCT USED FOR UNKNOWN INDICATION
     Dosage: 10 MG, QD
     Route: 048
     Dates: start: 20160511
  9. ATOVAQUONE. [Concomitant]
     Active Substance: ATOVAQUONE
     Indication: PRODUCT USED FOR UNKNOWN INDICATION
     Dosage: 750 MG, BID
     Route: 048
  10. NORTHERA [Suspect]
     Active Substance: DROXIDOPA
     Indication: COMPLICATIONS OF TRANSPLANTED LUNG
     Dosage: 400 MG, TID
     Route: 065
  11. NORTHERA [Suspect]
     Active Substance: DROXIDOPA
     Dosage: 600 MG, QD
     Route: 048
  12. ALENDRONATE SODIUM. [Concomitant]
     Active Substance: ALENDRONATE SODIUM
     Indication: PRODUCT USED FOR UNKNOWN INDICATION
     Dosage: 10 MG, UNK
     Route: 048
  13. MAGNESIUM [Concomitant]
     Active Substance: MAGNESIUM
     Indication: PRODUCT USED FOR UNKNOWN INDICATION
     Dosage: 400 MG, Q12H
     Route: 048
     Dates: start: 20160511
  14. MAGNESIUM [Concomitant]
     Active Substance: MAGNESIUM
     Dosage: 400 MG, BID
     Route: 048
  15. NOVOLOG [Concomitant]
     Active Substance: INSULIN ASPART
     Indication: PRODUCT USED FOR UNKNOWN INDICATION
     Dosage: 4 DF, QD (2 TO 4 UNIT QID BASED)
     Route: 058
     Dates: start: 20160511
  16. SULFAMETHOXAZOLE AND TRIMETHOPRIM [Concomitant]
     Active Substance: SULFAMETHOXAZOLE\TRIMETHOPRIM
     Indication: PRODUCT USED FOR UNKNOWN INDICATION
     Dosage: 800 TO 600 MG (0.5 MON, WED ANF FRIDAY)
     Route: 048
     Dates: start: 20160511
  17. TRAMADOL. [Concomitant]
     Active Substance: TRAMADOL
     Dosage: 50 MG, PRN
     Route: 048
  18. NORTHERA [Suspect]
     Active Substance: DROXIDOPA
     Dosage: 600 MG, TID
     Route: 048
     Dates: start: 20160830
  19. MYCOPHENOLATE MOFETIL. [Concomitant]
     Active Substance: MYCOPHENOLATE MOFETIL
     Dosage: 500 MG, BID (500 MG BEFORE MEALS)
     Route: 048
  20. N ACE [Concomitant]
     Indication: PRODUCT USED FOR UNKNOWN INDICATION
     Dosage: 1 DF, TID
     Route: 065
  21. POLYETHYLENE GLYCOL [Concomitant]
     Active Substance: POLYETHYLENE GLYCOLS
     Dosage: 1 DF, BID (3350)
     Route: 048
     Dates: start: 20160511
  22. ACETAMINOFEN [Concomitant]
     Active Substance: ACETAMINOPHEN
     Indication: PAIN
     Dosage: 2600 MG, UNK
     Route: 048
  23. NORTHERA [Suspect]
     Active Substance: DROXIDOPA
     Indication: LOSS OF CONSCIOUSNESS
     Dosage: 200 MG, TID
     Route: 065
     Dates: start: 201609, end: 20160905
  24. NORTHERA [Suspect]
     Active Substance: DROXIDOPA
     Dosage: 600 MG, TID
     Route: 065
  25. ERGOCALCIFEROL. [Concomitant]
     Active Substance: ERGOCALCIFEROL
     Indication: PRODUCT USED FOR UNKNOWN INDICATION
     Dosage: 71.428 (500 IU, 1 N 1WK)
     Route: 048
     Dates: start: 20160526
  26. MEGESTROL ACETATE. [Concomitant]
     Active Substance: MEGESTROL ACETATE
     Indication: PRODUCT USED FOR UNKNOWN INDICATION
     Dosage: 20 MG, QD
     Route: 048
     Dates: start: 20160622
  27. MYCOPHENOLATE MOFETIL. [Concomitant]
     Active Substance: MYCOPHENOLATE MOFETIL
     Indication: PRODUCT USED FOR UNKNOWN INDICATION
     Dosage: 500 MG, BID
     Route: 048
     Dates: start: 20160511
  28. POLYETHYLENE GLYCOL [Concomitant]
     Active Substance: POLYETHYLENE GLYCOLS
     Indication: CONSTIPATION
     Dosage: MIX 17 GM IN 8 OUNCE OF LIQUID AND DRINK 1 TO 2 TIMES DAILY)
     Route: 048
  29. PRENAT PLUS [Concomitant]
     Dosage: 1 DF, QD
     Route: 048
  30. VALGANCICLOVIR HYDROCHLORIDE. [Concomitant]
     Active Substance: VALGANCICLOVIR HYDROCHLORIDE
     Indication: PRODUCT USED FOR UNKNOWN INDICATION
     Dosage: 1 DF, QD
     Route: 048
     Dates: start: 20160511
  31. THIAMINE. [Concomitant]
     Active Substance: THIAMINE
     Indication: PRODUCT USED FOR UNKNOWN INDICATION
     Dosage: 1 DF, QD
     Route: 048
  32. TRAMADOL. [Concomitant]
     Active Substance: TRAMADOL
     Indication: PAIN
     Dosage: 200 MG, UNK
     Route: 048
  33. ACETAMINOFEN [Concomitant]
     Active Substance: ACETAMINOPHEN
     Indication: BODY TEMPERATURE
     Dosage: 650 MG, PRN
     Route: 048
  34. FLUOXETINE [Concomitant]
     Active Substance: FLUOXETINE HYDROCHLORIDE
     Indication: PRODUCT USED FOR UNKNOWN INDICATION
     Dosage: 40 MG, UNK
     Route: 048
  35. DUTASTERIDE. [Concomitant]
     Active Substance: DUTASTERIDE
     Indication: PRODUCT USED FOR UNKNOWN INDICATION
     Dosage: 1 DF, QD
     Route: 048
  36. ASPIRIN. [Concomitant]
     Active Substance: ASPIRIN
     Dosage: 81 MG, QD
     Route: 048
  37. DOCUSATE SODIUM. [Concomitant]
     Active Substance: DOCUSATE SODIUM
     Indication: PRODUCT USED FOR UNKNOWN INDICATION
     Dosage: 100 MG, BID
     Route: 048
     Dates: start: 20160511
  38. ITRACONAZOLE. [Concomitant]
     Active Substance: ITRACONAZOLE
     Dosage: 200 MG, BID
     Route: 048
  39. MIDODRINE HYDROCHLORIDE. [Concomitant]
     Active Substance: MIDODRINE HYDROCHLORIDE
     Indication: ORTHOSTATIC HYPERTENSION
     Dosage: 2.5 MG, TID
     Route: 048
     Dates: start: 20160627
  40. ASPIRIN. [Concomitant]
     Active Substance: ASPIRIN
     Indication: PRODUCT USED FOR UNKNOWN INDICATION
     Dosage: 325 MG, QD
     Route: 048
  41. AZITHROMYCIN ANHYDROUS. [Concomitant]
     Active Substance: AZITHROMYCIN ANHYDROUS
     Dosage: UNK
     Route: 048
  42. VITAMIN D [Concomitant]
     Active Substance: CHOLECALCIFEROL
     Indication: PRODUCT USED FOR UNKNOWN INDICATION
     Dosage: 1 DF, BID
     Route: 048
     Dates: start: 20160511
  43. ERGOCALCIFEROL. [Concomitant]
     Active Substance: ERGOCALCIFEROL
     Dosage: 71.428 IU,  (500 IU, 1 N 1WK
     Route: 048
     Dates: start: 20160526
  44. MIDODRINE HYDROCHLORIDE. [Concomitant]
     Active Substance: MIDODRINE HYDROCHLORIDE
     Dosage: 5 MG, TID
     Route: 048
     Dates: start: 20160511
  45. MIDODRINE HYDROCHLORIDE. [Concomitant]
     Active Substance: MIDODRINE HYDROCHLORIDE
     Dosage: 5 MG, QD
     Route: 048
  46. PRENAT PLUS [Concomitant]
     Indication: PRODUCT USED FOR UNKNOWN INDICATION
     Dosage: 27 MG, QD
     Route: 048
     Dates: start: 20160511
  47. FLUTICASONE FUROATE [Concomitant]
     Active Substance: FLUTICASONE FUROATE
     Indication: PRODUCT USED FOR UNKNOWN INDICATION
     Dosage: 1 DF, BID
     Route: 065
  48. NEORAL [Suspect]
     Active Substance: CYCLOSPORINE
     Dosage: 25 MG, BID
     Route: 065
  49. NEORAL [Suspect]
     Active Substance: CYCLOSPORINE
     Dosage: 100 MG, (50 MG AM AND  50 MG PM)
     Route: 048
  50. NORTHERA [Suspect]
     Active Substance: DROXIDOPA
     Indication: ORTHOSTATIC HYPERTENSION
     Dosage: UNK
     Route: 065
     Dates: start: 20160715
  51. NORTHERA [Suspect]
     Active Substance: DROXIDOPA
     Indication: AUTONOMIC NEUROPATHY
     Dosage: 300 MG, TID
     Route: 065
     Dates: start: 20160914
  52. AZITHROMYCIN ANHYDROUS. [Concomitant]
     Active Substance: AZITHROMYCIN ANHYDROUS
     Indication: PRODUCT USED FOR UNKNOWN INDICATION
     Dosage: 325 MG, (EVERY MON, WED, FRI)
     Route: 048
     Dates: start: 20160511
  53. AZITHROMYCIN ANHYDROUS. [Concomitant]
     Active Substance: AZITHROMYCIN ANHYDROUS
     Dosage: 71.428 MG, (MON, WED, FRI)
     Route: 048
  54. FINASTERIDE. [Concomitant]
     Active Substance: FINASTERIDE
     Indication: PRODUCT USED FOR UNKNOWN INDICATION
     Dosage: 5 MG, QD
     Route: 048
     Dates: start: 20160629
  55. NYSTATIN. [Concomitant]
     Active Substance: NYSTATIN
     Indication: PRODUCT USED FOR UNKNOWN INDICATION
     Dosage: 5 ML, QID (SWISH AND SWALLOW)
     Route: 048
     Dates: start: 20160511
  56. OMEPRAZOLE. [Concomitant]
     Active Substance: OMEPRAZOLE
     Indication: PRODUCT USED FOR UNKNOWN INDICATION
     Dosage: 20 MG, BID
     Route: 048
     Dates: start: 20160511
  57. OMEPRAZOLE. [Concomitant]
     Active Substance: OMEPRAZOLE
     Dosage: 20 MG, BID
     Route: 048
  58. ARIPIPRAZOLE. [Concomitant]
     Active Substance: ARIPIPRAZOLE
     Indication: PRODUCT USED FOR UNKNOWN INDICATION
     Dosage: 10 MG, UNK
     Route: 048
  59. DIAZEPAM. [Concomitant]
     Active Substance: DIAZEPAM
     Indication: PRODUCT USED FOR UNKNOWN INDICATION
     Dosage: 2.5 MG, UNK
     Route: 048

REACTIONS (41)
  - Decreased appetite [Unknown]
  - Supraventricular extrasystoles [Unknown]
  - Dizziness [Unknown]
  - Diarrhoea [Unknown]
  - Hypertension [Unknown]
  - Paranoia [Unknown]
  - Dyspnoea [Unknown]
  - Rhinorrhoea [Unknown]
  - Feeling abnormal [Unknown]
  - Failure to thrive [Unknown]
  - Anaemia [Unknown]
  - Incorrect dose administered [Recovered/Resolved]
  - Orthostatic hypertension [Unknown]
  - Cough [Unknown]
  - Chronic kidney disease [Unknown]
  - Nausea [Unknown]
  - Respiratory syncytial virus infection [Unknown]
  - Asthenia [Unknown]
  - Blood glucose increased [Unknown]
  - Condition aggravated [Unknown]
  - Pain [Unknown]
  - Pulmonary function test decreased [Unknown]
  - Fall [Recovered/Resolved]
  - Urinary tract infection enterococcal [Unknown]
  - Neutrophil count increased [Unknown]
  - Loss of consciousness [Unknown]
  - Fatigue [Unknown]
  - Thrombophlebitis superficial [Unknown]
  - Acute kidney injury [Unknown]
  - Anxiety [Unknown]
  - Tracheobronchitis [Unknown]
  - Insomnia [Unknown]
  - Influenza like illness [Unknown]
  - Thinking abnormal [Recovered/Resolved]
  - Cardiac arrest [Unknown]
  - Bowel movement irregularity [Unknown]
  - Arrhythmia [Unknown]
  - Aggression [Unknown]
  - Respiratory tract congestion [Unknown]
  - Pulmonary artery stenosis [Unknown]
  - Blood creatinine increased [Unknown]

NARRATIVE: CASE EVENT DATE: 201609
